FAERS Safety Report 5913458-3 (Version None)
Quarter: 2008Q4

REPORT INFORMATION
  Report Type: 
  Country: None (occurrence: None)
  Receive Date: 20081007
  Receipt Date: 20081001
  Transmission Date: 20090506
  Serious: Yes (Other)
  Sender: FDA-Public Use
  Company Number: 2008JP004710

PATIENT
  Age: 73 Year
  Sex: Male

DRUGS (2)
  1. FUNGUARD(MICAFUNGIN) INJECTION [Suspect]
     Dosage: 150 MG, /D, IV DRIP
     Route: 042
     Dates: start: 20080927, end: 20080928
  2. CIPROFLOXACIN HCL [Concomitant]

REACTIONS (2)
  - LIVER DISORDER [None]
  - PULMONARY FUNCTION TEST ABNORMAL [None]
